FAERS Safety Report 15229270 (Version 2)
Quarter: 2018Q3

REPORT INFORMATION
  Report Type: Report from Study
  Country: US (occurrence: US)
  Receive Date: 20180801
  Receipt Date: 20180903
  Transmission Date: 20181010
  Serious: No
  Sender: FDA-Public Use
  Company Number: US-TAKEDA-2018TUS023453

PATIENT

DRUGS (1)
  1. BRIGATINIB [Suspect]
     Active Substance: BRIGATINIB
     Indication: PRODUCT USED FOR UNKNOWN INDICATION
     Dosage: UNK
     Route: 065

REACTIONS (13)
  - Emotional distress [Unknown]
  - Dyspnoea exertional [Unknown]
  - Fatigue [Unknown]
  - Depression [Unknown]
  - Memory impairment [Unknown]
  - Dyspnoea [Unknown]
  - Cough [Unknown]
  - Somnolence [Unknown]
  - Discomfort [Unknown]
  - Dry mouth [Unknown]
  - Depressed mood [Unknown]
  - Dyspnoea at rest [Unknown]
  - Pain [Unknown]
